FAERS Safety Report 6781902-8 (Version None)
Quarter: 2010Q2

REPORT INFORMATION
  Report Type: 
  Country: None (occurrence: None)
  Receive Date: 20100618
  Receipt Date: 20100618
  Transmission Date: 20101027
  Serious: Yes (Hospitalization)
  Sender: FDA-Public Use
  Company Number: None

PATIENT
  Age: 85 Year
  Sex: Male

DRUGS (3)
  1. ATENOLOL [Suspect]
     Indication: ATRIAL FIBRILLATION
     Dosage: 75 MG EVERY DAY PO
     Route: 048
     Dates: start: 20100514, end: 20100610
  2. ATENOLOL [Suspect]
     Indication: CARDIOVASCULAR DISORDER
     Dosage: 75 MG EVERY DAY PO
     Route: 048
     Dates: start: 20100514, end: 20100610
  3. AMITRIPTYLINE [Suspect]
     Indication: PAIN
     Dosage: 10 MG EVERY DAY PO
     Route: 048
     Dates: start: 20100525, end: 20100610

REACTIONS (2)
  - SINUS ARREST [None]
  - SYNCOPE [None]
